FAERS Safety Report 8578264-2 (Version None)
Quarter: 2012Q3

REPORT INFORMATION
  Report Type: 
  Country: None (occurrence: None)
  Receive Date: 20120808
  Receipt Date: 20120731
  Transmission Date: 20120928
  Serious: Yes (Hospitalization)
  Sender: FDA-Public Use
  Company Number: US-BAYER-2012-078690

PATIENT
  Age: 46 Year
  Sex: Female
  Weight: 65.306 kg

DRUGS (20)
  1. CEFUROXIME [Concomitant]
     Dosage: 500 MG TAB
  2. RELAFEN [Concomitant]
     Indication: PAIN IN EXTREMITY
     Dosage: 750 MG, TAKE 1 TABLET PO ONE OR TWO TIMES DAILY PRN
     Route: 048
  3. TYLENOL [Concomitant]
  4. DROSPIRENONE AND ETHINYL ESTRADIOL [Suspect]
     Indication: MENORRHAGIA
  5. NARCOTICS [Concomitant]
  6. ATIVAN [Concomitant]
     Indication: PAIN
     Dosage: UNK
     Dates: start: 20100801
  7. NABUMETONE [Concomitant]
     Dosage: 75 MG, UNK
  8. DROSPIRENONE AND ETHINYL ESTRADIOL [Suspect]
     Indication: CONTRACEPTION
  9. ZOFRAN [Concomitant]
     Indication: PAIN
     Dosage: UNK
     Dates: start: 20100801
  10. DULCOLAX [Concomitant]
     Dosage: UNK
     Dates: start: 20100801
  11. FENTANYL [Concomitant]
     Dosage: UNK
     Dates: start: 20100801
  12. FERROUS SULFATE TAB [Concomitant]
     Dosage: UNK
     Dates: start: 20100801
  13. PRILOSEC [Concomitant]
     Dosage: UNK
     Dates: start: 20100801
  14. YAZ [Suspect]
  15. RELAFEN [Concomitant]
     Indication: BACK PAIN
     Dosage: 75 MG TAB
  16. NSAID'S [Concomitant]
     Indication: BACK PAIN
     Dosage: UNK
  17. COLACE [Concomitant]
     Dosage: UNK
     Dates: start: 20100801
  18. OXYCODONE HCL [Concomitant]
     Dosage: UNK
     Dates: start: 20100801
  19. LIDODERM [Concomitant]
     Dosage: 5 %, APPLY TO AFFECTED AREA AS DIRECTED
     Route: 061
  20. NAPROXEN (ALEVE) [Concomitant]

REACTIONS (1)
  - DEEP VEIN THROMBOSIS [None]
